FAERS Safety Report 15560105 (Version 1)
Quarter: 2018Q4

REPORT INFORMATION
  Report Type: Spontaneous
  Country: US (occurrence: US)
  Receive Date: 20181022
  Receipt Date: 20181022
  Transmission Date: 20190205
  Serious: No
  Sender: FDA-Public Use
  Company Number: None

PATIENT
  Age: 65 Year
  Sex: Female
  Weight: 72 kg

DRUGS (2)
  1. NIVOLUMAB [Suspect]
     Active Substance: NIVOLUMAB
     Indication: METASTATIC MALIGNANT MELANOMA
     Route: 042
     Dates: start: 20180831
  2. IPILIMUMAB [Suspect]
     Active Substance: IPILIMUMAB
     Route: 042

REACTIONS (2)
  - Atrial flutter [None]
  - Stevens-Johnson syndrome [None]

NARRATIVE: CASE EVENT DATE: 20180831
